FAERS Safety Report 13947187 (Version 27)
Quarter: 2021Q4

REPORT INFORMATION
  Report Type: Spontaneous
  Country: JP (occurrence: JP)
  Receive Date: 20170907
  Receipt Date: 20211103
  Transmission Date: 20220303
  Serious: Yes (Life-Threatening, Hospitalization, Other)
  Sender: FDA-Public Use
  Company Number: JP-UNITED THERAPEUTICS-UNT-2016-012695

PATIENT
  Age: 35 Year
  Sex: Female
  Weight: 72.6 kg

DRUGS (34)
  1. REMODULIN [Suspect]
     Active Substance: TREPROSTINIL
     Indication: Pulmonary arterial hypertension
     Dosage: 0.001 ?G/KG, CONTINUING
     Route: 058
     Dates: start: 20160728, end: 201608
  2. REMODULIN [Suspect]
     Active Substance: TREPROSTINIL
     Dosage: 0.004 ?G/KG, CONTINUING
     Route: 058
     Dates: start: 201608, end: 201608
  3. REMODULIN [Suspect]
     Active Substance: TREPROSTINIL
     Dosage: 0.010 ?G/KG, CONTINUING
     Route: 058
     Dates: start: 201608, end: 2016
  4. REMODULIN [Suspect]
     Active Substance: TREPROSTINIL
     Dosage: 0.060 ?G/KG, CONTINUING
     Route: 058
     Dates: start: 2016
  5. REMODULIN [Suspect]
     Active Substance: TREPROSTINIL
     Dosage: 0.102 ?G/KG, CONTINUING
     Route: 058
     Dates: start: 2017, end: 2017
  6. REMODULIN [Suspect]
     Active Substance: TREPROSTINIL
     Dosage: 0.1528 ?G/KG, CONTINUING
     Route: 058
     Dates: start: 2017, end: 2017
  7. REMODULIN [Suspect]
     Active Substance: TREPROSTINIL
     Dosage: 0.150 ?G/KG, CONTINUING
     Route: 058
     Dates: start: 20171211, end: 2017
  8. REMODULIN [Suspect]
     Active Substance: TREPROSTINIL
     Dosage: 0.165 ?G/KG, CONTINUING
     Route: 058
     Dates: start: 2017
  9. REMODULIN [Suspect]
     Active Substance: TREPROSTINIL
     Dosage: 0.140 ?G/KG, CONTINUING
     Route: 058
     Dates: end: 20180110
  10. REMODULIN [Suspect]
     Active Substance: TREPROSTINIL
     Dosage: UNK, CONTINUING
     Route: 058
     Dates: start: 20191228
  11. ADEMPAS [Concomitant]
     Active Substance: RIOCIGUAT
     Indication: Pulmonary arterial hypertension
     Dosage: 7.5 MG, QD
     Route: 048
     Dates: start: 201606
  12. OPSUMIT [Concomitant]
     Active Substance: MACITENTAN
     Indication: Pulmonary arterial hypertension
     Dosage: 10 MG, QD
     Route: 048
     Dates: start: 201606
  13. BERAPROST SODIUM [Concomitant]
     Active Substance: BERAPROST SODIUM
     Indication: Pulmonary arterial hypertension
     Dosage: UNK
     Route: 048
     Dates: start: 201607, end: 20160805
  14. LASIX [Concomitant]
     Active Substance: FUROSEMIDE
     Indication: Pulmonary arterial hypertension
     Dosage: UNK
     Route: 048
     Dates: end: 20171227
  15. SPIRONOLACTONE [Concomitant]
     Active Substance: SPIRONOLACTONE
     Indication: Pulmonary arterial hypertension
     Dosage: 25 MG, QD
     Route: 048
  16. NEXIUM [Concomitant]
     Active Substance: ESOMEPRAZOLE MAGNESIUM
     Indication: Product used for unknown indication
     Dosage: UNK
     Route: 048
     Dates: end: 20171101
  17. PLAVIX [Concomitant]
     Active Substance: CLOPIDOGREL BISULFATE
     Indication: Prophylaxis
     Dosage: UNK
     Route: 048
     Dates: end: 20170521
  18. BENZBROMARONE [Concomitant]
     Active Substance: BENZBROMARONE
     Indication: Product used for unknown indication
     Dosage: UNK
     Route: 048
  19. WARFARIN POTASSIUM [Concomitant]
     Active Substance: WARFARIN POTASSIUM
     Indication: Pulmonary arterial hypertension
     Dosage: UNK
     Route: 048
     Dates: end: 20170914
  20. BENZBROMARONE [Concomitant]
     Active Substance: BENZBROMARONE
     Indication: Product used for unknown indication
     Dosage: UNK
     Route: 048
     Dates: end: 20171222
  21. XARELTO [Concomitant]
     Active Substance: RIVAROXABAN
     Indication: Pulmonary arterial hypertension
     Dosage: 10 MG, QD
     Route: 048
     Dates: start: 20170914, end: 20180729
  22. URSO [Concomitant]
     Active Substance: URSODIOL
     Indication: Product used for unknown indication
     Dosage: 600 MG, QD
     Route: 048
     Dates: start: 20170927, end: 20180729
  23. SODIUM FERROUS CITRATE [Concomitant]
     Active Substance: SODIUM FERROUS CITRATE
     Indication: Product used for unknown indication
     Dosage: 50 MG, QD
     Route: 048
     Dates: start: 20170911
  24. FAMOTIDINE [Concomitant]
     Active Substance: FAMOTIDINE
     Indication: Product used for unknown indication
     Dosage: UNK
     Route: 048
     Dates: start: 20171101, end: 20180126
  25. AZUNOL [Concomitant]
     Indication: Product used for unknown indication
     Dosage: UNK
     Route: 061
     Dates: start: 20171103, end: 20180107
  26. TRAMCET [Concomitant]
     Active Substance: ACETAMINOPHEN\TRAMADOL
     Indication: Prophylaxis
     Dosage: UNK
     Route: 048
     Dates: start: 20160727, end: 201701
  27. CALONAL [Concomitant]
     Active Substance: ACETAMINOPHEN
     Indication: Prophylaxis
     Dosage: UNK
     Route: 048
     Dates: start: 20160727
  28. AZOSEMIDE [Concomitant]
     Active Substance: AZOSEMIDE
     Indication: Pulmonary arterial hypertension
     Dosage: 60 MG, QD
     Route: 048
     Dates: start: 20171228
  29. SLOW-K [Concomitant]
     Active Substance: POTASSIUM CHLORIDE
     Indication: Pulmonary arterial hypertension
     Dosage: 2400 MG, QD
     Route: 048
     Dates: end: 20190221
  30. POTASSIUM ASPARTATE [Concomitant]
     Active Substance: POTASSIUM ASPARTATE
     Indication: Pulmonary arterial hypertension
     Dosage: 2700 MG, Q8H
     Route: 048
     Dates: start: 20190222
  31. UPTRAVI [Concomitant]
     Active Substance: SELEXIPAG
     Indication: Pulmonary arterial hypertension
     Dosage: UNK
     Route: 048
     Dates: start: 20191104
  32. MIYA-BM [Concomitant]
     Active Substance: CLOSTRIDIUM BUTYRICUM SPORES STRAIN M-55
     Indication: Product used for unknown indication
     Dosage: 1 MG, Q8H
     Route: 065
  33. CORTRIL [Concomitant]
     Active Substance: HYDROCORTISONE
     Indication: Product used for unknown indication
     Dosage: 20 MG, QD
     Route: 065
  34. ADCIRCA [Concomitant]
     Active Substance: TADALAFIL
     Indication: Product used for unknown indication
     Dosage: 20 MG, Q12H
     Route: 065

REACTIONS (23)
  - Platelet count decreased [Not Recovered/Not Resolved]
  - Hypopituitarism [Recovering/Resolving]
  - Device related infection [Unknown]
  - Pseudomembranous colitis [Recovering/Resolving]
  - Helicobacter gastritis [Unknown]
  - Diarrhoea [Recovering/Resolving]
  - Vomiting [Recovering/Resolving]
  - Weight increased [Unknown]
  - White blood cell count decreased [Recovering/Resolving]
  - Injection site swelling [Unknown]
  - Injection site induration [Unknown]
  - Injection site erosion [Unknown]
  - Injection site pruritus [Recovered/Resolved]
  - Injection site erythema [Recovered/Resolved]
  - Injection site pain [Recovered/Resolved]
  - Nausea [Recovering/Resolving]
  - Influenza [Unknown]
  - Pyrexia [Unknown]
  - Dermatitis allergic [Unknown]
  - Needle issue [Unknown]
  - Injection site infection [Unknown]
  - Gastrointestinal disorder [Unknown]
  - Injection site eczema [Recovering/Resolving]

NARRATIVE: CASE EVENT DATE: 20160801
